FAERS Safety Report 10970029 (Version 3)
Quarter: 2015Q2

REPORT INFORMATION
  Report Type: Report from Study
  Country: US (occurrence: US)
  Receive Date: 20150331
  Receipt Date: 20150424
  Transmission Date: 20150821
  Serious: No
  Sender: FDA-Public Use
  Company Number: US-AMGEN-USASL2015029617

PATIENT
  Age: 54 Year
  Sex: Female

DRUGS (1)
  1. ENBREL [Suspect]
     Active Substance: ETANERCEPT
     Indication: RHEUMATOID ARTHRITIS
     Dosage: 50 MG, QWK
     Route: 065
     Dates: start: 20150311, end: 20150318

REACTIONS (7)
  - Injection site erythema [Recovered/Resolved]
  - Injection site rash [Not Recovered/Not Resolved]
  - Throat irritation [Not Recovered/Not Resolved]
  - Pharyngeal erythema [Not Recovered/Not Resolved]
  - Injection site swelling [Recovered/Resolved]
  - Injection site pain [Recovered/Resolved]
  - Injection site reaction [Recovered/Resolved]

NARRATIVE: CASE EVENT DATE: 20150323
